FAERS Safety Report 7749834-6 (Version None)
Quarter: 2011Q3

REPORT INFORMATION
  Report Type: 
  Country: None (occurrence: None)
  Receive Date: 20110914
  Receipt Date: 20110909
  Transmission Date: 20111222
  Serious: Yes (Other)
  Sender: FDA-Public Use
  Company Number: HR-ROCHE-801634

PATIENT
  Age: 62 Year
  Sex: Female

DRUGS (6)
  1. BONIVA [Suspect]
     Dosage: ROUTE, DOSE, FORM AND FREQUENCY: NOT PROVIDED
     Route: 065
     Dates: start: 20110328
  2. CALCIUM CARBONATE [Concomitant]
     Dosage: DRUG: KALCIJEV KARBONAT KRKA
  3. COLECALCIFEROL [Concomitant]
     Dosage: DRUG NAME: PLIVIT D3
  4. GEMFIBROZIL [Concomitant]
     Dosage: DRUG NAME: ELMOGAN
  5. VOLTAREN [Suspect]
     Route: 065
  6. DEXAMETHASONE [Concomitant]
     Dosage: DRUG: DEXAMETHASON KRKA TABLETS

REACTIONS (1)
  - HAEMATOCHEZIA [None]
